FAERS Safety Report 12345987 (Version 1)
Quarter: 2016Q2

REPORT INFORMATION
  Report Type: Spontaneous
  Country: FR (occurrence: FR)
  Receive Date: 20160509
  Receipt Date: 20160509
  Transmission Date: 20160815
  Serious: Yes (Hospitalization)
  Sender: FDA-Public Use
  Company Number: PHHY2016FR059361

PATIENT
  Age: 58 Year
  Sex: Male

DRUGS (8)
  1. ORACILLINE//PHENOXYMETHYLPENICILLIN BENZATHINE [Concomitant]
     Indication: PANCREATECTOMY
     Dosage: 1 DF, BID
     Route: 065
  2. SOLU-MEDROL [Suspect]
     Active Substance: METHYLPREDNISOLONE SODIUM SUCCINATE
     Indication: PRODUCT USED FOR UNKNOWN INDICATION
     Dosage: 80 MG, QD (1 IN 1 DAY)
     Route: 042
     Dates: start: 20160307, end: 20160309
  3. ORACILLINE//PHENOXYMETHYLPENICILLIN BENZATHINE [Concomitant]
     Indication: SPLENECTOMY
  4. ZOPHREN [Suspect]
     Active Substance: ONDANSETRON
     Indication: PRODUCT USED FOR UNKNOWN INDICATION
     Dosage: 2 DF, QD (1 DF, 2 IN 1 DAY)
     Route: 048
     Dates: start: 20160307
  5. CISPLATIN. [Suspect]
     Active Substance: CISPLATIN
     Indication: PANCREATIC CARCINOMA METASTATIC
     Dosage: 183 MG (1 IN 1 DAY)
     Route: 042
     Dates: start: 20160212, end: 20160309
  6. SOLUPRED [Suspect]
     Active Substance: PREDNISOLONE
     Indication: PRODUCT USED FOR UNKNOWN INDICATION
     Dosage: 2 DF, BID (2 IN 1 DAY)
     Route: 048
     Dates: start: 20160308, end: 20160309
  7. EMEND [Suspect]
     Active Substance: APREPITANT
     Indication: PRODUCT USED FOR UNKNOWN INDICATION
     Dosage: 1 DF, QD (1 IN 1 DAY)
     Dates: start: 20160307, end: 20160309
  8. ETOPOSIDE. [Suspect]
     Active Substance: ETOPOSIDE
     Indication: PANCREATIC CARCINOMA METASTATIC
     Dosage: 183 MG (1 IN 1 DAY)
     Route: 042
     Dates: start: 20160212, end: 20160309

REACTIONS (1)
  - Erosive duodenitis [Recovered/Resolved]

NARRATIVE: CASE EVENT DATE: 20160308
